FAERS Safety Report 7018292-1 (Version None)
Quarter: 2010Q3

REPORT INFORMATION
  Report Type: 
  Country: None (occurrence: None)
  Receive Date: 20100928
  Receipt Date: 20100920
  Transmission Date: 20110219
  Serious: Yes (Hospitalization)
  Sender: FDA-Public Use
  Company Number: US-KINGPHARMUSA00001-K201001174

PATIENT
  Sex: Male

DRUGS (8)
  1. TAPAZOLE [Suspect]
     Indication: HYPERTHYROIDISM
     Dosage: UNK
     Dates: start: 20100716, end: 20100804
  2. IPILIMUMAB [Suspect]
     Indication: MALIGNANT MELANOMA
     Dosage: 240 MG, QD
     Route: 042
     Dates: start: 20100422
  3. INDERAL [Concomitant]
     Dosage: UNK
     Dates: start: 20100716, end: 20100804
  4. MEGACE [Concomitant]
     Dosage: UNK
     Dates: start: 20100603, end: 20100804
  5. ZETIA [Concomitant]
     Dosage: UNK
     Dates: start: 20050101, end: 20100804
  6. PRAVACHOL [Concomitant]
     Dosage: UNK
     Dates: start: 19980101, end: 20100804
  7. CARDURA [Concomitant]
     Dosage: UNK
     Dates: start: 20000101, end: 20100804
  8. LORAZEPAM [Concomitant]
     Dosage: UNK
     Dates: start: 20090101, end: 20100804

REACTIONS (6)
  - BILE DUCT STENOSIS [None]
  - BLOOD BILIRUBIN INCREASED [None]
  - HEPATIC ENZYME INCREASED [None]
  - HEPATIC FAILURE [None]
  - JAUNDICE [None]
  - OCULAR ICTERUS [None]
